FAERS Safety Report 21683069 (Version 1)
Quarter: 2022Q4

REPORT INFORMATION
  Report Type: Report from Study
  Country: DE (occurrence: DE)
  Receive Date: 20221205
  Receipt Date: 20221205
  Transmission Date: 20230113
  Serious: Yes (Other)
  Sender: FDA-Public Use
  Company Number: DE-MYLANLABS-2022M1135741

PATIENT
  Sex: Male

DRUGS (8)
  1. HULIO [Suspect]
     Active Substance: ADALIMUMAB-FKJP
     Indication: Axial spondyloarthritis
     Dosage: 40 MILLIGRAM
     Route: 065
     Dates: start: 20210624
  2. HULIO [Suspect]
     Active Substance: ADALIMUMAB-FKJP
     Indication: Psoriatic arthropathy
  3. METHOTREXATE [Suspect]
     Active Substance: METHOTREXATE
     Indication: Axial spondyloarthritis
     Dosage: 10 MILLIGRAM
     Route: 065
     Dates: start: 20210311, end: 20211228
  4. METHOTREXATE [Suspect]
     Active Substance: METHOTREXATE
     Indication: Psoriatic arthropathy
  5. ETORICOXIB [Suspect]
     Active Substance: ETORICOXIB
     Indication: Axial spondyloarthritis
     Dosage: 90 MILLIGRAM
     Route: 065
     Dates: start: 20200504, end: 20210909
  6. ETORICOXIB [Suspect]
     Active Substance: ETORICOXIB
     Indication: Psoriatic arthropathy
  7. CELECOXIB [Suspect]
     Active Substance: CELECOXIB
     Indication: Axial spondyloarthritis
     Dosage: 200 MILLIGRAM
     Route: 065
     Dates: start: 20210909
  8. CELECOXIB [Suspect]
     Active Substance: CELECOXIB
     Indication: Psoriatic arthropathy
     Dosage: 100 MILLIGRAM
     Route: 065
     Dates: start: 20210909

REACTIONS (1)
  - Prostate cancer [Unknown]

NARRATIVE: CASE EVENT DATE: 20220315
